FAERS Safety Report 23954634 (Version 1)
Quarter: 2024Q2

REPORT INFORMATION
  Report Type: Spontaneous
  Country: US (occurrence: None)
  Receive Date: 20240610
  Receipt Date: 20240610
  Transmission Date: 20240716
  Serious: No
  Sender: FDA-Public Use
  Company Number: US-ROCHE-3386049

PATIENT
  Sex: Male
  Weight: 79.087 kg

DRUGS (4)
  1. POLIVY [Suspect]
     Active Substance: POLATUZUMAB VEDOTIN-PIIQ
     Indication: Diffuse large B-cell lymphoma
     Dosage: ON CYCLE DAY 1
     Route: 042
     Dates: start: 20230516
  2. RIABNI [Suspect]
     Active Substance: RITUXIMAB-ARRX
     Indication: Product used for unknown indication
     Dosage: ON CYCLE DAY 1
     Route: 042
  3. BENDEKA [Concomitant]
     Active Substance: BENDAMUSTINE HYDROCHLORIDE
  4. UDENYCA [Concomitant]
     Active Substance: PEGFILGRASTIM-CBQV
     Route: 058
     Dates: start: 20230518

REACTIONS (2)
  - White blood cell count decreased [Recovered/Resolved]
  - Wrong technique in product usage process [Unknown]

NARRATIVE: CASE EVENT DATE: 20230606
